FAERS Safety Report 14890570 (Version 1)
Quarter: 2018Q2

REPORT INFORMATION
  Report Type: Spontaneous
  Country: US (occurrence: US)
  Receive Date: 20180426
  Receipt Date: 20180426
  Transmission Date: 20180711
  Serious: Yes (Life-Threatening, Hospitalization)
  Sender: FDA-Public Use
  Company Number: None

PATIENT
  Sex: Male

DRUGS (11)
  1. TACROLIMUS. [Suspect]
     Active Substance: TACROLIMUS
     Indication: TRANSPLANT
     Route: 048
     Dates: start: 20151218
  2. NOVOLOG [Concomitant]
     Active Substance: INSULIN ASPART
  3. SPS [Concomitant]
     Active Substance: SODIUM POLYSTYRENE SULFONATE
  4. MYCOPHENOLATE [Suspect]
     Active Substance: MYCOPHENOLIC ACID
     Indication: TRANSPLANT
     Route: 048
     Dates: start: 20150801
  5. LORATADINE. [Concomitant]
     Active Substance: LORATADINE
  6. URSODIOL. [Concomitant]
     Active Substance: URSODIOL
  7. LANTUS [Concomitant]
     Active Substance: INSULIN GLARGINE
  8. ELIQUIS [Concomitant]
     Active Substance: APIXABAN
  9. ATORVASTATIN [Concomitant]
     Active Substance: ATORVASTATIN
  10. OMEPRAZOLE. [Concomitant]
     Active Substance: OMEPRAZOLE
  11. ALLOPURINOL. [Concomitant]
     Active Substance: ALLOPURINOL

REACTIONS (1)
  - Hospitalisation [None]
